FAERS Safety Report 25489670 (Version 2)
Quarter: 2025Q3

REPORT INFORMATION
  Report Type: Spontaneous
  Country: US (occurrence: US)
  Receive Date: 20250627
  Receipt Date: 20250707
  Transmission Date: 20251020
  Serious: No
  Sender: ELI LILLY AND COMPANY
  Company Number: US-ELI_LILLY_AND_COMPANY-US202506023131

PATIENT
  Age: 47 Year
  Sex: Female

DRUGS (2)
  1. TALTZ [Suspect]
     Active Substance: IXEKIZUMAB
     Indication: Psoriatic arthropathy
     Dosage: 80 MG, WEEKLY (1/W)
     Route: 058
  2. TALTZ [Suspect]
     Active Substance: IXEKIZUMAB
     Route: 058

REACTIONS (7)
  - Hypoaesthesia oral [Unknown]
  - Glossodynia [Unknown]
  - Inappropriate schedule of product administration [Unknown]
  - Lip swelling [Unknown]
  - Stomatitis [Unknown]
  - Overdose [Unknown]
  - Urticaria [Unknown]
